FAERS Safety Report 9422906 (Version 3)
Quarter: 2013Q4

REPORT INFORMATION
  Report Type: Spontaneous
  Country: IT (occurrence: IT)
  Receive Date: 20130726
  Receipt Date: 20131003
  Transmission Date: 20140711
  Serious: Yes (Hospitalization, Other)
  Sender: FDA-Public Use
  Company Number: IT-JNJFOC-20130712837

PATIENT
  Age: 68 Year
  Sex: Male
  Weight: 74 kg

DRUGS (6)
  1. REMICADE [Suspect]
     Indication: COLITIS ULCERATIVE
     Route: 042
  2. REMICADE [Suspect]
     Indication: COLITIS ULCERATIVE
     Dosage: STRENGTH: 100 MG
     Route: 042
     Dates: start: 20130327
  3. REMICADE [Suspect]
     Indication: COLITIS ULCERATIVE
     Dosage: 2ND INFUSION
     Route: 042
     Dates: start: 20130410, end: 20130410
  4. DELTACORTENE [Concomitant]
     Indication: COLITIS ULCERATIVE
     Dosage: 25 MG TABLET, 12.5 MG GRADUATED, SCALAR
     Route: 048
  5. PENTACOL [Concomitant]
     Indication: COLITIS ULCERATIVE
     Dosage: STRENGTH: 800 MG
     Route: 048
  6. ENTECAVIR [Concomitant]
     Indication: CHRONIC HEPATITIS B
     Route: 065

REACTIONS (6)
  - Dyspnoea [Recovered/Resolved]
  - Pain [Recovered/Resolved]
  - Infection [Recovered/Resolved]
  - Hyperfibrinogenaemia [Unknown]
  - Viral infection [Recovered/Resolved]
  - Hyperglycaemia [Unknown]
